FAERS Safety Report 7277615-9 (Version None)
Quarter: 2011Q1

REPORT INFORMATION
  Report Type: 
  Country: None (occurrence: None)
  Receive Date: 20110207
  Receipt Date: 20110125
  Transmission Date: 20110831
  Serious: Yes (Hospitalization, Other)
  Sender: FDA-Public Use
  Company Number: US-JNJFOC-20040600486

PATIENT
  Age: 18 Month
  Sex: Female
  Weight: 11 kg

DRUGS (2)
  1. ACETAMINOPHEN [Suspect]
     Route: 048
  2. ACETAMINOPHEN [Suspect]
     Indication: PRODUCT USED FOR UNKNOWN INDICATION
     Route: 048

REACTIONS (8)
  - METABOLIC ACIDOSIS [None]
  - MENTAL STATUS CHANGES [None]
  - HYPOTENSION [None]
  - PROTHROMBIN LEVEL INCREASED [None]
  - RESPIRATORY FAILURE [None]
  - ASPARTATE AMINOTRANSFERASE INCREASED [None]
  - ACCIDENTAL EXPOSURE [None]
  - ACTIVATED PARTIAL THROMBOPLASTIN TIME PROLONGED [None]
